FAERS Safety Report 18359135 (Version 1)
Quarter: 2020Q4

REPORT INFORMATION
  Report Type: Spontaneous
  Country: US (occurrence: US)
  Receive Date: 20201008
  Receipt Date: 20201008
  Transmission Date: 20210114
  Serious: Yes (Hospitalization, Other)
  Sender: FDA-Public Use
  Company Number: US-INDIVIOR LIMITED-INDV-122413-2019

PATIENT
  Age: 0 Year
  Sex: Female

DRUGS (2)
  1. SUBUTEX [Suspect]
     Active Substance: BUPRENORPHINE HYDROCHLORIDE
     Indication: DRUG DEPENDENCE
     Dosage: 8 MILLIGRAM, UNKNOWN
     Route: 064
     Dates: end: 20191016
  2. SUBUTEX [Suspect]
     Active Substance: BUPRENORPHINE HYDROCHLORIDE
     Dosage: 8 MILLIGRAM, UNKNOWN
     Route: 063
     Dates: start: 201910

REACTIONS (3)
  - Exposure via breast milk [Not Recovered/Not Resolved]
  - Drug withdrawal syndrome neonatal [Recovered/Resolved]
  - Foetal exposure during pregnancy [Recovered/Resolved]

NARRATIVE: CASE EVENT DATE: 201910
